FAERS Safety Report 9486955 (Version 1)
Quarter: 2013Q3

REPORT INFORMATION
  Report Type: Spontaneous
  Country: BR (occurrence: BR)
  Receive Date: 20130829
  Receipt Date: 20130829
  Transmission Date: 20140515
  Serious: Yes (Hospitalization)
  Sender: FDA-Public Use
  Company Number: BR-ASTRAZENECA-2013SE65262

PATIENT
  Age: 27918 Day
  Sex: Female
  Weight: 79 kg

DRUGS (1)
  1. SYMBICORT TURBUHALER [Suspect]
     Indication: EMPHYSEMA
     Dosage: 160/4.5 MCG, BID
     Route: 055
     Dates: start: 201306

REACTIONS (1)
  - Coronary artery insufficiency [Recovered/Resolved]
